FAERS Safety Report 25338479 (Version 1)
Quarter: 2025Q2

REPORT INFORMATION
  Report Type: Spontaneous
  Country: US (occurrence: US)
  Receive Date: 20250520
  Receipt Date: 20250520
  Transmission Date: 20250717
  Serious: No
  Sender: SANOFI AVENTIS
  Company Number: US-SA-2025SA143184

PATIENT
  Age: 73 Year
  Sex: Female

DRUGS (1)
  1. DUPIXENT [Suspect]
     Active Substance: DUPILUMAB
     Indication: Neurodermatitis
     Dosage: 300 MG, QOW
     Route: 058

REACTIONS (8)
  - Decreased appetite [Unknown]
  - Musculoskeletal stiffness [Unknown]
  - Paraesthesia [Unknown]
  - Vision blurred [Unknown]
  - Diarrhoea [Unknown]
  - Erythema [Unknown]
  - Dizziness [Unknown]
  - Headache [Unknown]
